FAERS Safety Report 11119004 (Version 3)
Quarter: 2015Q2

REPORT INFORMATION
  Report Type: Report from Study
  Country: NL (occurrence: NL)
  Receive Date: 20150518
  Receipt Date: 20150529
  Transmission Date: 20150821
  Serious: Yes (Death)
  Sender: FDA-Public Use
  Company Number: NL-ABBVIE-15P-114-1392613-00

PATIENT
  Age: 86 Year
  Sex: Male
  Weight: 65 kg

DRUGS (1)
  1. DUODOPA [Suspect]
     Active Substance: CARBIDOPA\LEVODOPA
     Indication: PARKINSON^S DISEASE
     Dosage: ROUTE: INTESTINAL, 20/5 MG/ML CONTINOUS
     Route: 065
     Dates: start: 20101111

REACTIONS (5)
  - Decubitus ulcer [Fatal]
  - Infection [Fatal]
  - Condition aggravated [Fatal]
  - Pyrexia [Fatal]
  - Somnolence [Fatal]

NARRATIVE: CASE EVENT DATE: 20150511
